FAERS Safety Report 8379216-8 (Version None)
Quarter: 2012Q2

REPORT INFORMATION
  Report Type: 
  Country: None (occurrence: None)
  Receive Date: 20120523
  Receipt Date: 20120517
  Transmission Date: 20120825
  Serious: Yes (Other)
  Sender: FDA-Public Use
  Company Number: ES-GENZYME-CERZ-1002423

PATIENT
  Sex: Female
  Weight: 48 kg

DRUGS (2)
  1. CEREZYME [Suspect]
     Indication: GAUCHER'S DISEASE
     Dosage: 60 U/KG, UNK
     Route: 042
     Dates: start: 20021001
  2. VELAGLUCERASE [Suspect]
     Indication: GAUCHER'S DISEASE

REACTIONS (4)
  - DRUG INEFFECTIVE [None]
  - DISEASE PROGRESSION [None]
  - DRUG SPECIFIC ANTIBODY PRESENT [None]
  - BONE DISORDER [None]
